FAERS Safety Report 18480482 (Version 1)
Quarter: 2020Q4

REPORT INFORMATION
  Report Type: Spontaneous
  Country: CH (occurrence: CH)
  Receive Date: 20201109
  Receipt Date: 20201109
  Transmission Date: 20210114
  Serious: Yes (Hospitalization, Other)
  Sender: FDA-Public Use
  Company Number: CH-PFIZER INC-2020426802

PATIENT
  Age: 54 Year
  Sex: Male
  Weight: 85 kg

DRUGS (19)
  1. CYRAMZA [Suspect]
     Active Substance: RAMUCIRUMAB
     Indication: METASTASES TO LUNG
     Dosage: 500 MG (5TH CYCLE )
     Route: 042
     Dates: start: 20200604, end: 20200604
  2. CYRAMZA [Suspect]
     Active Substance: RAMUCIRUMAB
     Indication: HEPATOCELLULAR CARCINOMA
     Dosage: 700 MG, EVERY 14 DAYS (12 CYCLES IN TOTAL, 5TH CYCLE WITH A LOWERED DOSE)
     Route: 042
     Dates: start: 20200305, end: 20200827
  3. KALIUM HAUSMANN [Suspect]
     Active Substance: POTASSIUM BICARBONATE\POTASSIUM CITRATE
     Dosage: 10 MMOL, 2X/DAY (1-0-1)
     Route: 048
     Dates: start: 2020, end: 20200904
  4. KALIUM HAUSMANN [Suspect]
     Active Substance: POTASSIUM BICARBONATE\POTASSIUM CITRATE
     Dosage: 10 MMOL, 2X/DAY (1-0-1)
     Route: 048
     Dates: start: 2020, end: 20201006
  5. RAPAMUNE [Concomitant]
     Active Substance: SIROLIMUS
     Dosage: 2 MG, 1X/DAY (1-0-0-0)
     Route: 048
  6. VEMLIDY [Concomitant]
     Active Substance: TENOFOVIR ALAFENAMIDE FUMARATE
     Dosage: 25 MG, 1X/DAY (1-0-0-0)
     Route: 048
  7. ALDACTONE [Suspect]
     Active Substance: SPIRONOLACTONE
     Dosage: 12.5 MG, 1X/DAY (1-0-0-0)
     Route: 048
     Dates: end: 202004
  8. LISITRIL [Suspect]
     Active Substance: LISINOPRIL
     Dosage: 20 MG (1-0-1-0)
     Route: 048
     Dates: end: 202004
  9. AMLODIPINE [Concomitant]
     Active Substance: AMLODIPINE BESYLATE
     Dosage: 10 MG, 1X/DAY (1-0-0-0)
     Route: 048
  10. HYDROCHLOROTHIAZIDE. [Suspect]
     Active Substance: HYDROCHLOROTHIAZIDE
     Dosage: 25 MG, 1X/DAY (1-0-0-0)
     Route: 048
     Dates: end: 202004
  11. DOSPIR [Concomitant]
     Active Substance: ALBUTEROL SULFATE\IPRATROPIUM BROMIDE
     Dosage: 1 DF, 4X/DAY
     Route: 055
  12. ONDANSETRON [Concomitant]
     Active Substance: ONDANSETRON
     Dosage: 1 DF, AS NEEDED
     Route: 048
  13. PRAVASTATIN. [Concomitant]
     Active Substance: PRAVASTATIN
     Dosage: 40 MG, 1X/DAY (1-0-0-0)
     Route: 048
     Dates: end: 202010
  14. NOVALGIN (METAMIZOLE SODIUM) [Concomitant]
     Active Substance: METAMIZOLE SODIUM
     Dosage: 1000 MG, DAILY (500 MG 2-0-0-0)
     Route: 048
     Dates: end: 202010
  15. CYRAMZA [Suspect]
     Active Substance: RAMUCIRUMAB
     Indication: METASTASES TO THE MEDIASTINUM
  16. VITAMIN D3 STREULI [Concomitant]
     Active Substance: CHOLECALCIFEROL
     Dosage: 1.8 ML, 1X/DAY (4000 U / ML 1.8 ML)
     Route: 048
     Dates: end: 202010
  17. CELLCEPT [Concomitant]
     Active Substance: MYCOPHENOLATE MOFETIL\MYCOPHENOLATE MOFETIL HYDROCHLORIDE
     Dosage: 1000 MG, 2X/DAY (500 MG 2-0-2)
     Route: 048
  18. LISITRIL [Suspect]
     Active Substance: LISINOPRIL
     Dosage: 20 MG, 1X/DAY (1-0-0-0)
     Route: 048
     Dates: start: 202008, end: 202010
  19. METFORMIN [Concomitant]
     Active Substance: METFORMIN HYDROCHLORIDE
     Dosage: 500 MG, 1X/DAY (1-0-0-0)
     Route: 048
     Dates: end: 202010

REACTIONS (3)
  - Hyperkalaemia [Recovered/Resolved]
  - Hypoosmolar state [Recovered/Resolved]
  - Hyponatraemia [Recovered/Resolved]

NARRATIVE: CASE EVENT DATE: 20200401
